FAERS Safety Report 8120738-2 (Version None)
Quarter: 2012Q1

REPORT INFORMATION
  Report Type: 
  Country: None (occurrence: None)
  Receive Date: 20120207
  Receipt Date: 20120202
  Transmission Date: 20120608
  Serious: Yes (Other)
  Sender: FDA-Public Use
  Company Number: US-MERCK-1202USA00821

PATIENT
  Age: 63 Year
  Sex: Male

DRUGS (2)
  1. FOSAMAX [Suspect]
     Route: 048
     Dates: start: 20030101, end: 20050101
  2. FOSAMAX [Suspect]
     Route: 048
     Dates: start: 20030101, end: 20050101

REACTIONS (1)
  - FEMUR FRACTURE [None]
